FAERS Safety Report 6064182-0 (Version None)
Quarter: 2009Q1

REPORT INFORMATION
  Report Type: 
  Country: None (occurrence: None)
  Receive Date: 20090204
  Receipt Date: 20090123
  Transmission Date: 20090719
  Serious: Yes (Hospitalization)
  Sender: FDA-Public Use
  Company Number: FR-PFIZER INC-2009161735

PATIENT

DRUGS (7)
  1. VFEND [Suspect]
     Dosage: UNK
     Route: 048
     Dates: start: 20060318, end: 20080811
  2. PROGRAF [Suspect]
     Dosage: UNK
     Route: 048
     Dates: start: 20020101
  3. CELLCEPT [Suspect]
     Dosage: UNK
     Route: 048
     Dates: start: 20020101
  4. CORTANCYL [Suspect]
     Dosage: UNK
     Route: 048
     Dates: start: 20020101
  5. CORTANCYL [Suspect]
     Dosage: UNK
     Dates: start: 20080801
  6. SPORANOX [Concomitant]
     Dosage: UNK
     Dates: start: 20080808
  7. EVEROLIMUS [Concomitant]

REACTIONS (1)
  - SQUAMOUS CELL CARCINOMA [None]
